FAERS Safety Report 8857233 (Version 1)
Quarter: 2012Q4

REPORT INFORMATION
  Report Type: 
  Country: US (occurrence: US)
  Receive Date: 20121024
  Receipt Date: 20121024
  Transmission Date: 20130627
  Serious: Yes (Other)
  Sender: FDA-Public Use
  Company Number: US-JNJFOC-20121009469

PATIENT
  Age: 70 Year
  Sex: Female

DRUGS (1)
  1. NUCYNTA IR [Suspect]
     Indication: ANALGESIC THERAPY
     Route: 048
     Dates: start: 2012, end: 2012

REACTIONS (3)
  - Delusion [Unknown]
  - Memory impairment [Unknown]
  - Fatigue [Unknown]
